FAERS Safety Report 9377562 (Version 2)
Quarter: 2013Q3

REPORT INFORMATION
  Report Type: Spontaneous
  Country: US (occurrence: US)
  Receive Date: 20130701
  Receipt Date: 20130807
  Transmission Date: 20140515
  Serious: No
  Sender: FDA-Public Use
  Company Number: US-PFIZER INC-2013191240

PATIENT
  Age: 27 Year
  Sex: Male
  Weight: 61.22 kg

DRUGS (9)
  1. ZYVOX [Suspect]
     Indication: PULMONARY TUBERCULOSIS
     Dosage: 600 MG, 1X/DAY
     Route: 048
     Dates: start: 20130307, end: 20130605
  2. ZYVOX [Suspect]
     Dosage: 600 MG, ALTERNATE DAY
     Route: 048
     Dates: start: 20130607, end: 20130613
  3. AMIKACIN [Concomitant]
     Indication: PULMONARY TUBERCULOSIS
     Dosage: 700 MG, 3X/WEEK
     Route: 030
     Dates: start: 20130307
  4. ETHAMBUTOL [Concomitant]
     Dosage: 1600 MG, UNK
     Route: 055
     Dates: start: 20130307, end: 20130402
  5. INH [Concomitant]
     Dosage: 300 MG, UNK
     Dates: start: 20130307
  6. VITAMIN B6 [Concomitant]
     Dosage: 100 MG, 1X/DAY
     Route: 048
     Dates: start: 20130307
  7. PAS [Concomitant]
     Dosage: UNK
     Dates: start: 20130307
  8. CLOFAZIMINE [Concomitant]
     Dosage: 100 MG, 1X/DAY
     Route: 048
     Dates: start: 20130408
  9. CLOFAZIMINE [Concomitant]
     Dosage: 50 MG, 1X/DAY
     Dates: start: 20130417

REACTIONS (6)
  - Neuropathy peripheral [Not Recovered/Not Resolved]
  - Paraesthesia [Not Recovered/Not Resolved]
  - Hypoaesthesia [Not Recovered/Not Resolved]
  - Asthenia [Not Recovered/Not Resolved]
  - Sensory disturbance [Not Recovered/Not Resolved]
  - Pain in extremity [Not Recovered/Not Resolved]
